FAERS Safety Report 9135446 (Version 1)
Quarter: 2013Q1

REPORT INFORMATION
  Report Type: Spontaneous
  Country: FI (occurrence: FI)
  Receive Date: 20130304
  Receipt Date: 20130304
  Transmission Date: 20140127
  Serious: Yes (Death, Other)
  Sender: FDA-Public Use
  Company Number: FI-PFIZER INC-2013071490

PATIENT
  Age: 72 Year
  Sex: Female

DRUGS (10)
  1. LIPITOR [Suspect]
     Dosage: UNK
     Route: 048
     Dates: start: 1999
  2. OMEPRAZOLE [Suspect]
     Dosage: UNK
     Route: 048
     Dates: start: 201202
  3. LOSARTAN [Suspect]
     Indication: CORONARY ARTERY DISEASE
     Dosage: UNK
     Route: 048
     Dates: start: 201202
  4. SELOPRAL [Concomitant]
     Dosage: UNK
     Route: 048
     Dates: start: 2012
  5. PARATABS [Concomitant]
     Dosage: UNK
  6. PRIMASPAN [Concomitant]
     Dosage: UNK
  7. NITROSID [Concomitant]
     Dosage: UNK
  8. ZANIDIP [Concomitant]
     Dosage: UNK
     Dates: start: 2012
  9. OVESTIN [Concomitant]
     Dosage: UNK
  10. OXYNORM [Concomitant]
     Indication: PAIN
     Dosage: UNK
     Dates: start: 2012

REACTIONS (3)
  - Hepatic necrosis [Fatal]
  - Hepatorenal syndrome [Unknown]
  - Metabolic acidosis [Unknown]
